FAERS Safety Report 8188183-1 (Version None)
Quarter: 2012Q1

REPORT INFORMATION
  Report Type: 
  Country: None (occurrence: None)
  Receive Date: 20120221
  Receipt Date: 20110415
  Transmission Date: 20120608
  Serious: Yes (Other)
  Sender: FDA-Public Use
  Company Number: PHEH2011US07778

PATIENT
  Age: 49 Year
  Sex: Female
  Weight: 55.3 kg

DRUGS (1)
  1. TOBI [Suspect]
     Dosage: 300 MG, EVERY 12 HOURS FOR 28 DAYS ON THEN 28 DAYS OFF, INHALATION
     Route: 055
     Dates: start: 20100706, end: 20110116

REACTIONS (1)
  - EPISTAXIS [None]
